FAERS Safety Report 8224808-X (Version None)
Quarter: 2012Q1

REPORT INFORMATION
  Report Type: 
  Country: None (occurrence: None)
  Receive Date: 20120314
  Receipt Date: 20120314
  Transmission Date: 20120608
  Serious: Yes (Other)
  Sender: FDA-Public Use
  Company Number: None

PATIENT

DRUGS (1)
  1. ACETAMINOPHEN AND CODEINE PHOSPHATE [Suspect]

REACTIONS (9)
  - CONDITION AGGRAVATED [None]
  - SUICIDAL IDEATION [None]
  - ACTIVITIES OF DAILY LIVING IMPAIRED [None]
  - ARTHRALGIA [None]
  - INADEQUATE ANALGESIA [None]
  - DEPRESSION [None]
  - GAIT DISTURBANCE [None]
  - EMOTIONAL DISORDER [None]
  - DRUG THERAPEUTIC INCOMPATIBILITY [None]
